FAERS Safety Report 11896441 (Version 1)
Quarter: 2016Q1

REPORT INFORMATION
  Report Type: Spontaneous
  Country: AT (occurrence: AT)
  Receive Date: 20160107
  Receipt Date: 20160107
  Transmission Date: 20160526
  Serious: Yes (Hospitalization)
  Sender: FDA-Public Use
  Company Number: AT-ABBVIE-16P-009-1532639-00

PATIENT
  Age: 46 Year
  Sex: Male

DRUGS (7)
  1. RIVOTRIL [Concomitant]
     Active Substance: CLONAZEPAM
     Indication: PRODUCT USED FOR UNKNOWN INDICATION
     Dates: start: 20150318
  2. MIRTABENE [Concomitant]
     Active Substance: MIRTAZAPINE
     Indication: PRODUCT USED FOR UNKNOWN INDICATION
  3. QUETIAPINE FUMARATE. [Concomitant]
     Active Substance: QUETIAPINE FUMARATE
     Indication: PRODUCT USED FOR UNKNOWN INDICATION
  4. TEMESTA [Concomitant]
     Active Substance: LORAZEPAM
     Indication: PRODUCT USED FOR UNKNOWN INDICATION
     Dates: start: 20150317, end: 20150317
  5. DEPAKENE [Suspect]
     Active Substance: VALPROIC ACID
     Indication: PRODUCT USED FOR UNKNOWN INDICATION
     Route: 048
     Dates: start: 20150322, end: 20150323
  6. DEPAKENE [Suspect]
     Active Substance: VALPROIC ACID
     Route: 048
     Dates: start: 20150324, end: 20150331
  7. PRADAXA [Concomitant]
     Active Substance: DABIGATRAN ETEXILATE MESYLATE
     Indication: PRODUCT USED FOR UNKNOWN INDICATION

REACTIONS (2)
  - Encephalopathy [Recovering/Resolving]
  - Ammonia increased [Recovered/Resolved]

NARRATIVE: CASE EVENT DATE: 20150323
